FAERS Safety Report 23171131 (Version 2)
Quarter: 2023Q4

REPORT INFORMATION
  Report Type: Spontaneous
  Country: US (occurrence: US)
  Receive Date: 20231110
  Receipt Date: 20231123
  Transmission Date: 20240110
  Serious: Yes (Hospitalization, Other)
  Sender: FDA-Public Use
  Company Number: US-TAKEDA-2023TUS107029

PATIENT
  Sex: Female

DRUGS (39)
  1. NATPARA (PARATHYROID HORMONE) [Suspect]
     Active Substance: PARATHYROID HORMONE
     Indication: Hypoparathyroidism
     Dosage: UNK
     Route: 065
     Dates: start: 2016
  2. NATPARA (PARATHYROID HORMONE) [Suspect]
     Active Substance: PARATHYROID HORMONE
     Indication: Hypoparathyroidism
     Dosage: UNK
     Route: 065
     Dates: start: 2016
  3. NATPARA (PARATHYROID HORMONE) [Suspect]
     Active Substance: PARATHYROID HORMONE
     Indication: Hypoparathyroidism
     Dosage: UNK
     Route: 065
     Dates: start: 2016
  4. NATPARA (PARATHYROID HORMONE) [Suspect]
     Active Substance: PARATHYROID HORMONE
     Indication: Hypocalcaemia
     Dosage: 50 MICROGRAM, QD
     Route: 065
     Dates: start: 2017
  5. NATPARA (PARATHYROID HORMONE) [Suspect]
     Active Substance: PARATHYROID HORMONE
     Indication: Hypocalcaemia
     Dosage: 50 MICROGRAM, QD
     Route: 065
     Dates: start: 2017
  6. NATPARA (PARATHYROID HORMONE) [Suspect]
     Active Substance: PARATHYROID HORMONE
     Indication: Hypocalcaemia
     Dosage: 50 MICROGRAM, QD
     Route: 065
     Dates: start: 2017
  7. NATPARA (PARATHYROID HORMONE) [Suspect]
     Active Substance: PARATHYROID HORMONE
     Dosage: 75 MICROGRAM, QD
     Route: 065
     Dates: start: 20171202
  8. NATPARA (PARATHYROID HORMONE) [Suspect]
     Active Substance: PARATHYROID HORMONE
     Dosage: 75 MICROGRAM, QD
     Route: 065
     Dates: start: 20171202
  9. NATPARA (PARATHYROID HORMONE) [Suspect]
     Active Substance: PARATHYROID HORMONE
     Dosage: 75 MICROGRAM, QD
     Route: 065
     Dates: start: 20171202
  10. NATPARA (PARATHYROID HORMONE) [Suspect]
     Active Substance: PARATHYROID HORMONE
     Dosage: 100 MICROGRAM, QD
     Route: 065
     Dates: start: 20180129
  11. NATPARA (PARATHYROID HORMONE) [Suspect]
     Active Substance: PARATHYROID HORMONE
     Dosage: 100 MICROGRAM, QD
     Route: 065
     Dates: start: 20180129
  12. NATPARA (PARATHYROID HORMONE) [Suspect]
     Active Substance: PARATHYROID HORMONE
     Dosage: 100 MICROGRAM, QD
     Route: 065
     Dates: start: 20180129
  13. FORTEO [Suspect]
     Active Substance: TERIPARATIDE
     Indication: Product used for unknown indication
     Dosage: 20 MICROGRAM, BID
     Route: 065
     Dates: start: 20190913
  14. FORTEO [Suspect]
     Active Substance: TERIPARATIDE
     Dosage: UNK UNK, BID
     Route: 065
     Dates: start: 20190919
  15. FORTEO [Suspect]
     Active Substance: TERIPARATIDE
     Dosage: UNK UNK, BID
     Route: 065
     Dates: start: 20191023
  16. FORTEO [Suspect]
     Active Substance: TERIPARATIDE
     Dosage: UNK UNK, QD
     Route: 065
     Dates: start: 2020
  17. FORTEO [Suspect]
     Active Substance: TERIPARATIDE
     Dosage: UNK UNK, BID
     Route: 065
     Dates: start: 20200812
  18. FORTEO [Suspect]
     Active Substance: TERIPARATIDE
     Dosage: UNK UNK, BID
     Route: 065
     Dates: start: 20210315
  19. FORTEO [Suspect]
     Active Substance: TERIPARATIDE
     Dosage: UNK UNK, BID
     Route: 065
     Dates: start: 20220414
  20. FORTEO [Suspect]
     Active Substance: TERIPARATIDE
     Dosage: UNK UNK, BID
     Route: 065
     Dates: start: 20220505
  21. FORTEO [Suspect]
     Active Substance: TERIPARATIDE
     Dosage: UNK UNK, BID
     Route: 065
     Dates: start: 20220509
  22. FORTEO [Suspect]
     Active Substance: TERIPARATIDE
     Dosage: UNK UNK, BID
     Route: 065
     Dates: start: 20220509
  23. CALCITRIOL [Concomitant]
     Active Substance: CALCITRIOL
     Dosage: 0.25 MICROGRAM, BID
     Route: 065
     Dates: start: 20190911
  24. CALCITRIOL [Concomitant]
     Active Substance: CALCITRIOL
     Dosage: 0.5 MICROGRAM, BID
     Route: 065
     Dates: start: 20230919
  25. CALCITRIOL [Concomitant]
     Active Substance: CALCITRIOL
     Dosage: 0.25 MICROGRAM, BID
     Route: 065
     Dates: start: 20191023
  26. CALCITRIOL [Concomitant]
     Active Substance: CALCITRIOL
     Dosage: 0.25 MICROGRAM, BID
     Route: 065
     Dates: start: 2020
  27. CALCITRIOL [Concomitant]
     Active Substance: CALCITRIOL
     Dosage: 0.25 MICROGRAM, BID
     Route: 065
     Dates: start: 20200812
  28. CALCITRIOL [Concomitant]
     Active Substance: CALCITRIOL
     Dosage: 0.25 MICROGRAM, BID
     Route: 065
     Dates: start: 20210315
  29. CALCITRIOL [Concomitant]
     Active Substance: CALCITRIOL
     Dosage: 0.25 MICROGRAM, BID
     Route: 065
     Dates: start: 20231020
  30. VITAMIN D [Concomitant]
     Active Substance: VITAMIN D NOS
     Dosage: 50000 INTERNATIONAL UNIT, 1/WEEK
     Route: 065
     Dates: start: 20190915
  31. VITAMIN D [Concomitant]
     Active Substance: VITAMIN D NOS
     Dosage: UNK
     Route: 065
     Dates: start: 20190919
  32. VITAMIN D [Concomitant]
     Active Substance: VITAMIN D NOS
     Dosage: UNK
     Route: 065
     Dates: start: 20191023
  33. VITAMIN D [Concomitant]
     Active Substance: VITAMIN D NOS
     Dosage: UNK UNK, 1/WEEK
     Route: 065
     Dates: start: 2020
  34. VITAMIN D [Concomitant]
     Active Substance: VITAMIN D NOS
     Dosage: UNK UNK, 1/WEEK
     Route: 065
     Dates: start: 20200812
  35. VITAMIN D [Concomitant]
     Active Substance: VITAMIN D NOS
     Dosage: UNK UNK, 1/WEEK
     Route: 065
     Dates: start: 20210315
  36. VITAMIN D [Concomitant]
     Active Substance: VITAMIN D NOS
     Dosage: UNK UNK, 1/WEEK
     Route: 065
     Dates: start: 20220414
  37. VITAMIN D [Concomitant]
     Active Substance: VITAMIN D NOS
     Dosage: UNK UNK, 1/WEEK
     Route: 065
     Dates: start: 20220505
  38. VITAMIN D [Concomitant]
     Active Substance: VITAMIN D NOS
     Dosage: UNK UNK, 1/WEEK
     Route: 065
     Dates: start: 20220509
  39. VITAMIN D [Concomitant]
     Active Substance: VITAMIN D NOS
     Dosage: UNK UNK, 1/WEEK
     Route: 065
     Dates: start: 20221020

REACTIONS (5)
  - Hypocalcaemia [Unknown]
  - Symptom recurrence [Unknown]
  - Injection site pain [Unknown]
  - Insurance issue [Unknown]
  - Product availability issue [Unknown]
